FAERS Safety Report 6894100-4 (Version None)
Quarter: 2010Q3

REPORT INFORMATION
  Report Type: 
  Country: None (occurrence: None)
  Receive Date: 20100802
  Receipt Date: 20100722
  Transmission Date: 20110219
  Serious: Yes (Other)
  Sender: FDA-Public Use
  Company Number: US-JNJFOC-20100707866

PATIENT
  Sex: Male
  Weight: 147.42 kg

DRUGS (6)
  1. SANDOZ FENTANYL TRANSDERMAL SYSTEM [Suspect]
     Indication: PAIN IN EXTREMITY
     Route: 062
  2. DIAZEPAM [Concomitant]
     Indication: ANXIETY
     Route: 048
  3. DIOVAN [Concomitant]
     Indication: HYPERTENSION
     Route: 048
  4. TOPROL-XL [Concomitant]
     Indication: CARDIAC DISORDER
     Route: 048
  5. CYMBALTA [Concomitant]
     Indication: ANALGESIC THERAPY
     Route: 048
  6. OXYCODONE HCL [Concomitant]
     Indication: BREAKTHROUGH PAIN
     Dosage: MAY TAKE 6 IN 24 HOURS
     Route: 048

REACTIONS (7)
  - APPLICATION SITE EROSION [None]
  - CONVULSION [None]
  - GASTROOESOPHAGEAL REFLUX DISEASE [None]
  - MUSCLE SPASMS [None]
  - PROSTATIC DISORDER [None]
  - RESTLESS LEGS SYNDROME [None]
  - WEIGHT DECREASED [None]
